FAERS Safety Report 8076190-9 (Version None)
Quarter: 2012Q1

REPORT INFORMATION
  Report Type: 
  Country: None (occurrence: None)
  Receive Date: 20120117
  Receipt Date: 20120110
  Transmission Date: 20120608
  Serious: Yes (Death)
  Sender: FDA-Public Use
  Company Number: 1000027241

PATIENT
  Age: 27 Year
  Sex: Male

DRUGS (3)
  1. MORPHINE [Suspect]
     Dosage: ORAL
     Route: 048
  2. METHAMPHETAMINE HYDROCHLORIDE [Suspect]
     Dosage: ORAL
     Route: 048
  3. CITALOPRAM HYDROBROMIDE [Suspect]
     Dosage: ORAL
     Route: 048

REACTIONS (1)
  - CARDIO-RESPIRATORY ARREST [None]
